FAERS Safety Report 8909269 (Version 2)
Quarter: 2012Q4

REPORT INFORMATION
  Report Type: Spontaneous
  Country: US (occurrence: None)
  Receive Date: 20121025
  Receipt Date: 20121106
  Transmission Date: 20130627
  Serious: Yes (Death, Other)
  Sender: FDA-Public Use
  Company Number: 2012PROUSA02066

PATIENT
  Age: 75 Year
  Sex: Male
  Weight: 92.4 kg

DRUGS (3)
  1. PROVENGE (SIPULEUCEL-T) SUSPENSION, 250ML [Suspect]
     Indication: PROSTATE CANCER METASTATIC
     Route: 042
     Dates: start: 20120917, end: 20120917
  2. PROVENGE (SIPULEUCEL-T) SUSPENSION, 250ML [Suspect]
     Indication: PROSTATE CANCER METASTATIC
     Route: 042
     Dates: start: 20121001, end: 20121001
  3. MORPHINE SULFATE (MORPHINE SULFATE) [Concomitant]

REACTIONS (5)
  - Cardiac arrest [None]
  - Cardiac failure [None]
  - Unresponsive to stimuli [None]
  - Blood pressure increased [None]
  - Treatment noncompliance [None]
